FAERS Safety Report 9448806 (Version 1)
Quarter: 2013Q3

REPORT INFORMATION
  Report Type: Spontaneous
  Country: US (occurrence: US)
  Receive Date: 20130808
  Receipt Date: 20130808
  Transmission Date: 20140515
  Serious: No
  Sender: FDA-Public Use
  Company Number: US-TEVA-423866USA

PATIENT
  Sex: Male

DRUGS (1)
  1. FENTORA [Suspect]
     Route: 002

REACTIONS (2)
  - Stress [Unknown]
  - Anxiety [Unknown]
